FAERS Safety Report 8795021 (Version 1)
Quarter: 2012Q4

REPORT INFORMATION
  Report Type: 
  Country: US (occurrence: US)
  Receive Date: 20120917
  Receipt Date: 20120917
  Transmission Date: 20130627
  Serious: Yes (Death)
  Sender: FDA-Public Use
  Company Number: US-ROCHE-1128622

PATIENT
  Sex: Female

DRUGS (9)
  1. LEUCOVORIN [Concomitant]
  2. CPT-11 [Concomitant]
  3. EPO [Concomitant]
  4. OPTIMAX [Concomitant]
  5. SUTENT [Concomitant]
  6. ERBITUX [Concomitant]
  7. AVASTIN [Suspect]
     Indication: COLON CANCER
     Route: 065
     Dates: start: 20050706
  8. AVASTIN [Suspect]
     Indication: HAEMATOLOGICAL MALIGNANCY
  9. 5-FU [Concomitant]

REACTIONS (1)
  - Death [Fatal]
